FAERS Safety Report 15942068 (Version 1)
Quarter: 2019Q1

REPORT INFORMATION
  Report Type: Spontaneous
  Country: US (occurrence: US)
  Receive Date: 20190210
  Receipt Date: 20190210
  Transmission Date: 20190417
  Serious: No
  Sender: FDA-Public Use
  Company Number: US-TARO-2018TAR00173

PATIENT
  Sex: Female

DRUGS (1)
  1. FLUOCINONIDE TOPICAL SOLUTION USP 0.05% [Suspect]
     Active Substance: FLUOCINONIDE
     Route: 061

REACTIONS (2)
  - Alopecia [Recovered/Resolved]
  - Application site pain [Recovered/Resolved]
